FAERS Safety Report 5055438-9 (Version None)
Quarter: 2006Q3

REPORT INFORMATION
  Report Type: 
  Country: None (occurrence: None)
  Receive Date: 20060714
  Receipt Date: 20060627
  Transmission Date: 20061208
  Serious: Yes (Other)
  Sender: FDA-Public Use
  Company Number: IE200606003688

PATIENT
  Age: 66 Year
  Sex: Male

DRUGS (7)
  1. ALIMTA [Suspect]
     Indication: NON-SMALL CELL LUNG CANCER
     Dosage: SEE IMAGE
     Dates: start: 20060525
  2. ALIMTA [Suspect]
     Indication: NON-SMALL CELL LUNG CANCER
     Dosage: SEE IMAGE
     Dates: start: 20060615
  3. FOLIC ACID [Concomitant]
  4. CYANOCOBALAMIN [Concomitant]
  5. MOTILIUM [Concomitant]
  6. DEXAMETHASONE [Concomitant]
  7. VERAPAMIL [Concomitant]

REACTIONS (9)
  - DIARRHOEA [None]
  - DRY SKIN [None]
  - ERYTHEMA [None]
  - MOUTH ULCERATION [None]
  - MUCOSAL INFLAMMATION [None]
  - NAUSEA [None]
  - PERIORBITAL OEDEMA [None]
  - RASH GENERALISED [None]
  - STOMACH DISCOMFORT [None]
